FAERS Safety Report 22182815 (Version 9)
Quarter: 2023Q2

REPORT INFORMATION
  Report Type: Spontaneous
  Country: JP (occurrence: JP)
  Receive Date: 20230406
  Receipt Date: 20230523
  Transmission Date: 20230721
  Serious: Yes (Death, Hospitalization, Other)
  Sender: FDA-Public Use
  Company Number: JP-JNJFOC-20230407961

PATIENT
  Age: 59 Year
  Sex: Male

DRUGS (20)
  1. PALIPERIDONE PALMITATE [Suspect]
     Active Substance: PALIPERIDONE PALMITATE
     Indication: Schizophrenia
     Dosage: THERAPY END DATE //2023
     Route: 030
     Dates: start: 20210306
  2. PALIPERIDONE PALMITATE [Suspect]
     Active Substance: PALIPERIDONE PALMITATE
     Indication: Schizophrenia
     Route: 030
     Dates: start: 20230401, end: 20230401
  3. PALIPERIDONE PALMITATE [Suspect]
     Active Substance: PALIPERIDONE PALMITATE
  4. AMLODIPINE [Suspect]
     Active Substance: AMLODIPINE BESYLATE
     Dosage: DOSE UNKNOWN
     Route: 048
  5. OLMESARTAN [Suspect]
     Active Substance: OLMESARTAN
     Dosage: DOSE UNKNOWN
     Route: 048
     Dates: end: 20230329
  6. AZELNIDIPINE [Suspect]
     Active Substance: AZELNIDIPINE
     Dosage: DOSE UNKNOWN
     Route: 048
     Dates: end: 20230329
  7. HALOPERIDOL [Suspect]
     Active Substance: HALOPERIDOL
     Indication: Postoperative delirium
     Dosage: 1/2A PER TIME,IN THE MORNING AND EVENING,P.R.N?THERAPY END DATE /APR/2023
     Route: 065
     Dates: start: 20230331
  8. PALIPERIDONE PALMITATE [Concomitant]
     Active Substance: PALIPERIDONE PALMITATE
     Indication: Schizophrenia
     Route: 030
     Dates: start: 20201114, end: 20201114
  9. PALIPERIDONE PALMITATE [Concomitant]
     Active Substance: PALIPERIDONE PALMITATE
     Route: 030
     Dates: start: 20201212, end: 20201212
  10. PALIPERIDONE PALMITATE [Concomitant]
     Active Substance: PALIPERIDONE PALMITATE
     Route: 030
     Dates: start: 20210109, end: 20210109
  11. PALIPERIDONE PALMITATE [Concomitant]
     Active Substance: PALIPERIDONE PALMITATE
     Route: 030
     Dates: start: 20210206, end: 20210206
  12. TRIHEXYPHENIDYL HYDROCHLORIDE [Concomitant]
     Active Substance: TRIHEXYPHENIDYL HYDROCHLORIDE
     Indication: Parkinsonism
     Dosage: DOSE UNKNOWN
     Route: 048
     Dates: end: 20230329
  13. DAYVIGO [Concomitant]
     Active Substance: LEMBOREXANT
     Dosage: DOSE UNKNOWN
     Route: 048
     Dates: end: 20230329
  14. ALVO [Concomitant]
     Dosage: DOSE UNKNOWN
     Route: 048
     Dates: end: 20230329
  15. EPERISONE HYDROCHLORIDE [Concomitant]
     Active Substance: EPERISONE HYDROCHLORIDE
     Dosage: DOSE UNKNOWN
     Route: 048
     Dates: end: 20230329
  16. MAGNESIUM OXIDE [Concomitant]
     Active Substance: MAGNESIUM OXIDE
     Dosage: DOSE UNKNOWN
     Route: 048
     Dates: end: 20230329
  17. LANSOPRAZOLE [Concomitant]
     Active Substance: LANSOPRAZOLE
     Dosage: DOSE UNKNOWN
     Route: 048
     Dates: end: 20230329
  18. FEXOFENADINE HYDROCHLORIDE [Concomitant]
     Active Substance: FEXOFENADINE HYDROCHLORIDE
     Dosage: DOSE UNKNOWN
     Route: 048
     Dates: end: 20230329
  19. SENNOSIDES A AND B [Concomitant]
     Active Substance: SENNOSIDES A AND B
     Dosage: DOSE UNKNOWN
     Route: 048
     Dates: end: 20230329
  20. PROPOFOL [Concomitant]
     Active Substance: PROPOFOL
     Dosage: 25ML/HX17H
     Route: 065
     Dates: start: 20230329, end: 20230330

REACTIONS (6)
  - Neuroleptic malignant syndrome [Fatal]
  - Cerebellar haemorrhage [Unknown]
  - Postoperative delirium [Unknown]
  - Pneumonia aspiration [Unknown]
  - Inappropriate schedule of product administration [Unknown]
  - Off label use [Unknown]

NARRATIVE: CASE EVENT DATE: 20230329
